FAERS Safety Report 16588671 (Version 2)
Quarter: 2019Q3

REPORT INFORMATION
  Report Type: Spontaneous
  Country: ES (occurrence: US)
  Receive Date: 20190718
  Receipt Date: 20190805
  Transmission Date: 20191004
  Serious: No
  Sender: FDA-Public Use
  Company Number: ES-ALK-ABELLO A/S-2019AA002571

PATIENT

DRUGS (1)
  1. ACARIZAX 12 SQ-HDM [Suspect]
     Active Substance: DERMATOPHAGOIDES FARINAE\DERMATOPHAGOIDES PTERONYSSINUS
     Indication: PRODUCT USED FOR UNKNOWN INDICATION
     Dosage: 12 SQ-HDM
     Dates: start: 201907, end: 201907

REACTIONS (8)
  - Glossitis [Unknown]
  - Drug monitoring procedure not performed [Unknown]
  - Off label use [Unknown]
  - Odynophagia [Unknown]
  - Tongue ulceration [Unknown]
  - Oral pruritus [Unknown]
  - Saliva altered [Unknown]
  - Sensation of foreign body [Unknown]

NARRATIVE: CASE EVENT DATE: 201907
